FAERS Safety Report 7824916-9 (Version None)
Quarter: 2011Q4

REPORT INFORMATION
  Report Type: 
  Country: None (occurrence: None)
  Receive Date: 20111019
  Receipt Date: 20110328
  Transmission Date: 20120403
  Serious: No
  Sender: FDA-Public Use
  Company Number: US-BRISTOL-MYERS SQUIBB COMPANY-15565369

PATIENT
  Age: 57 Year
  Sex: Female

DRUGS (3)
  1. SYNTHROID [Concomitant]
  2. VESICARE [Concomitant]
  3. AVALIDE [Suspect]
     Dosage: 1 DF = 150/12.5MG FOR 5+ YEARS

REACTIONS (1)
  - BLOOD PRESSURE INCREASED [None]
